FAERS Safety Report 6016810-3 (Version None)
Quarter: 2008Q4

REPORT INFORMATION
  Report Type: 
  Country: None (occurrence: None)
  Receive Date: 20081219
  Receipt Date: 20081205
  Transmission Date: 20090506
  Serious: Yes (Disabling)
  Sender: FDA-Public Use
  Company Number: ENTC2007-0080

PATIENT
  Age: 68 Year
  Sex: Female

DRUGS (4)
  1. STALEVO 100 [Suspect]
     Indication: PARKINSON'S DISEASE
     Dosage: 2X100/25/200MG; 1X100/25/200MG; 50/12.5/100MG
     Route: 048
     Dates: end: 20070204
  2. STALEVO 100 [Suspect]
     Indication: PARKINSON'S DISEASE
     Dosage: 2X100/25/200MG; 1X100/25/200MG; 50/12.5/100MG
     Route: 048
     Dates: start: 20070204
  3. ANAPSIQUE [Concomitant]
  4. LEVOTHYROXINE [Concomitant]

REACTIONS (3)
  - MUSCLE RIGIDITY [None]
  - SKIN ATROPHY [None]
  - TREMOR [None]
